FAERS Safety Report 9256659 (Version 4)
Quarter: 2014Q2

REPORT INFORMATION
  Report Type: Spontaneous
  Country: US (occurrence: US)
  Receive Date: 20130426
  Receipt Date: 20140609
  Transmission Date: 20141212
  Serious: Yes (Other)
  Sender: FDA-Public Use
  Company Number: US-ASTRAZENECA-2013SE27670

PATIENT
  Age: 21465 Day
  Sex: Female

DRUGS (11)
  1. NEXIUM [Suspect]
     Indication: GASTROOESOPHAGEAL REFLUX DISEASE
     Dosage: TWICE DAILY
     Route: 048
     Dates: start: 2000
  2. NEXIUM [Suspect]
     Indication: GASTROOESOPHAGEAL REFLUX DISEASE
     Route: 048
     Dates: start: 20010806
  3. NEXIUM [Suspect]
     Indication: GASTROOESOPHAGEAL REFLUX DISEASE
     Route: 048
     Dates: start: 2002
  4. NEXIUM [Suspect]
     Indication: GASTROOESOPHAGEAL REFLUX DISEASE
     Route: 048
     Dates: start: 20100227
  5. LISINOPRIL [Concomitant]
     Indication: BLOOD PRESSURE ABNORMAL
  6. ACTONEL [Concomitant]
  7. PRILOSEC [Concomitant]
     Route: 048
  8. EVISTA [Concomitant]
     Route: 048
  9. KEFTAB [Concomitant]
     Route: 048
  10. PREVACID [Concomitant]
     Route: 048
  11. LEVAQUIN [Concomitant]
     Route: 048

REACTIONS (19)
  - Back disorder [Unknown]
  - Joint dislocation [Unknown]
  - Osteoporosis [Unknown]
  - Spinal compression fracture [Unknown]
  - Upper limb fracture [Unknown]
  - Hand fracture [Unknown]
  - Bone disorder [Unknown]
  - Foot fracture [Unknown]
  - Rib fracture [Unknown]
  - Fall [Unknown]
  - Depression [Unknown]
  - Osteoarthritis [Unknown]
  - Scoliosis [Unknown]
  - Humerus fracture [Unknown]
  - Spinal osteoarthritis [Unknown]
  - Lumbar spinal stenosis [Unknown]
  - Carpal tunnel syndrome [Unknown]
  - Rheumatoid arthritis [Unknown]
  - Intervertebral disc degeneration [Unknown]
